FAERS Safety Report 20445460 (Version 1)
Quarter: 2022Q1

REPORT INFORMATION
  Report Type: Spontaneous
  Country: CO (occurrence: CO)
  Receive Date: 20220208
  Receipt Date: 20220208
  Transmission Date: 20220424
  Serious: Yes (Other)
  Sender: FDA-Public Use
  Company Number: CO-NOVARTISPH-NVSC2022CO026852

PATIENT
  Age: 67 Year

DRUGS (1)
  1. ELTROMBOPAG [Suspect]
     Active Substance: ELTROMBOPAG
     Indication: Immune thrombocytopenia
     Dosage: 50 MG, QD (RECEIVED FOR 22 MONTHS)
     Route: 048
     Dates: start: 20200307

REACTIONS (5)
  - Haemorrhage [Recovered/Resolved]
  - Platelet count decreased [Unknown]
  - Immune thrombocytopenia [Unknown]
  - Disease progression [Unknown]
  - Drug ineffective [Unknown]

NARRATIVE: CASE EVENT DATE: 20211020
